FAERS Safety Report 13526269 (Version 1)
Quarter: 2017Q2

REPORT INFORMATION
  Report Type: Other
  Country: TR (occurrence: TR)
  Receive Date: 20170509
  Receipt Date: 20170509
  Transmission Date: 20170830
  Serious: Yes (Life-Threatening, Hospitalization)
  Sender: FDA-Public Use
  Company Number: TR-ORCHID HEALTHCARE-2020432

PATIENT
  Age: 18 Year
  Sex: Female
  Weight: 61 kg

DRUGS (1)
  1. AMLODIPINE BESYLATE. [Suspect]
     Active Substance: AMLODIPINE BESYLATE
     Route: 065

REACTIONS (8)
  - Hypotension [Recovered/Resolved]
  - Intentional overdose [Recovered/Resolved]
  - Sinus bradycardia [Recovered/Resolved]
  - Hypoxia [Recovered/Resolved]
  - Pleural effusion [Recovered/Resolved]
  - Troponin increased [Recovered/Resolved]
  - Respiratory rate increased [Recovered/Resolved]
  - Suicide attempt [Recovered/Resolved]
